FAERS Safety Report 7946920-2 (Version None)
Quarter: 2011Q4

REPORT INFORMATION
  Report Type: 
  Country: None (occurrence: None)
  Receive Date: 20111129
  Receipt Date: 20111114
  Transmission Date: 20120403
  Serious: Yes (Hospitalization)
  Sender: FDA-Public Use
  Company Number: ES-CTI_01418_2011

PATIENT
  Age: 34 Year
  Sex: Female

DRUGS (1)
  1. MEIACT MS - CEFDITOREN PIVOXIL [Suspect]
     Indication: MASTITIS
     Dosage: DAILY DOSE 400 MG
     Route: 048
     Dates: start: 20111010, end: 20111011

REACTIONS (3)
  - PRODUCT QUALITY ISSUE [None]
  - MASTITIS [None]
  - TREATMENT FAILURE [None]
